FAERS Safety Report 15229950 (Version 2)
Quarter: 2018Q3

REPORT INFORMATION
  Report Type: Spontaneous
  Country: US (occurrence: US)
  Receive Date: 20180802
  Receipt Date: 20180808
  Transmission Date: 20181010
  Serious: No
  Sender: FDA-Public Use
  Company Number: US-TEVA-2018-US-934849

PATIENT
  Sex: Female

DRUGS (1)
  1. CLONAZEPAM. [Suspect]
     Active Substance: CLONAZEPAM
     Route: 065

REACTIONS (6)
  - Product substitution issue [Unknown]
  - Wrong technique in product usage process [Unknown]
  - Fatigue [Unknown]
  - Drug effect decreased [Unknown]
  - Somnolence [Unknown]
  - Drug ineffective [Unknown]
